FAERS Safety Report 8559742-9 (Version None)
Quarter: 2012Q3

REPORT INFORMATION
  Report Type: 
  Country: None (occurrence: None)
  Receive Date: 20120802
  Receipt Date: 20120726
  Transmission Date: 20120928
  Serious: Yes (Hospitalization)
  Sender: FDA-Public Use
  Company Number: FR-PFIZER INC-2012180836

PATIENT
  Age: 67 Year
  Sex: Male

DRUGS (6)
  1. IBUPROFEN (ADVIL) [Suspect]
     Indication: SUPERINFECTION
  2. AUGMENTIN '500' [Suspect]
     Indication: SUPERINFECTION
  3. FLAGYL [Suspect]
     Indication: CHRONIC SINUSITIS
     Dosage: 500 MG, 2X/DAY
     Route: 048
     Dates: start: 20120509, end: 20120524
  4. FLAGYL [Suspect]
     Indication: SUPERINFECTION
  5. IBUPROFEN (ADVIL) [Suspect]
     Indication: CHRONIC SINUSITIS
     Dosage: 200 MG, 1X/DAY
     Route: 048
     Dates: start: 20120509, end: 20120524
  6. AUGMENTIN '500' [Suspect]
     Indication: CHRONIC SINUSITIS
     Dosage: 1 G, 3X/DAY
     Route: 048
     Dates: start: 20120509, end: 20120524

REACTIONS (6)
  - CHOLANGITIS [None]
  - JAUNDICE [None]
  - TOXOPLASMOSIS [None]
  - CHOLESTASIS [None]
  - BLOOD BILIRUBIN INCREASED [None]
  - GAMMA-GLUTAMYLTRANSFERASE INCREASED [None]
